FAERS Safety Report 24932214 (Version 1)
Quarter: 2025Q1

REPORT INFORMATION
  Report Type: Report from Study
  Country: US (occurrence: US)
  Receive Date: 20250205
  Receipt Date: 20250205
  Transmission Date: 20250408
  Serious: No
  Sender: EXELIXIS
  Company Number: US-EXELIXIS-CABO-24079941

PATIENT
  Age: 78 Year
  Sex: Male

DRUGS (11)
  1. CABOMETYX [Suspect]
     Active Substance: CABOZANTINIB S-MALATE
     Indication: Angiosarcoma
     Dosage: 40 MG, QD
     Dates: start: 20240706
  2. OPDIVO [Suspect]
     Active Substance: NIVOLUMAB
     Indication: Angiosarcoma
     Dosage: UNK, Q2WEEKS
     Dates: start: 20240706
  3. FINASTERIDE [Concomitant]
     Active Substance: FINASTERIDE
  4. ATORVASTATIN [Concomitant]
     Active Substance: ATORVASTATIN
  5. ESOMEPRAZOLE [Concomitant]
     Active Substance: ESOMEPRAZOLE
  6. VITAMIN D3 [Concomitant]
     Active Substance: CHOLECALCIFEROL
  7. METOPROLOL [Concomitant]
     Active Substance: METOPROLOL
  8. LOSARTAN [Concomitant]
     Active Substance: LOSARTAN
  9. METAMUCIL [Concomitant]
     Active Substance: PLANTAGO SEED
  10. MAGNESIUM OXIDE [Concomitant]
     Active Substance: MAGNESIUM OXIDE
  11. ASPIRIN [Concomitant]
     Active Substance: ASPIRIN

REACTIONS (8)
  - Blood pressure increased [Not Recovered/Not Resolved]
  - Thyroid hormones increased [Not Recovered/Not Resolved]
  - Fatigue [Not Recovered/Not Resolved]
  - Pain in extremity [Not Recovered/Not Resolved]
  - Gastrointestinal motility disorder [Recovering/Resolving]
  - Dysphonia [Not Recovered/Not Resolved]
  - Nail discolouration [Not Recovered/Not Resolved]
  - Off label use [Unknown]

NARRATIVE: CASE EVENT DATE: 20240701
